FAERS Safety Report 11753985 (Version 1)
Quarter: 2015Q4

REPORT INFORMATION
  Report Type: Spontaneous
  Country: US (occurrence: US)
  Receive Date: 20151119
  Receipt Date: 20151119
  Transmission Date: 20160304
  Serious: No
  Sender: FDA-Public Use
  Company Number: US-BAYER-2015-465158

PATIENT
  Age: 86 Year
  Sex: Female

DRUGS (2)
  1. MIRALAX [Suspect]
     Active Substance: POLYETHYLENE GLYCOL 3350
     Indication: GASTROINTESTINAL MOTILITY DISORDER
     Dosage: 1 DF, QD
     Route: 048
     Dates: start: 2005
  2. BAYER LOW DOSE [Suspect]
     Active Substance: ASPIRIN
     Indication: PROPHYLAXIS

REACTIONS (5)
  - Product use issue [None]
  - Product use issue [None]
  - Abdominal distension [None]
  - Weight increased [None]
  - Drug ineffective [None]

NARRATIVE: CASE EVENT DATE: 2005
